FAERS Safety Report 9259083 (Version 2)
Quarter: 2013Q3

REPORT INFORMATION
  Report Type: Report from Study
  Country: CA (occurrence: CA)
  Receive Date: 20130426
  Receipt Date: 20130822
  Transmission Date: 20140515
  Serious: Yes (Hospitalization)
  Sender: FDA-Public Use
  Company Number: CA-ABBOTT-13X-028-1081800-00

PATIENT
  Sex: Male

DRUGS (4)
  1. VALPROATE SEMISODIUM [Suspect]
     Indication: CONVULSION
     Dates: start: 20090604, end: 20091005
  2. VALPROATE SEMISODIUM [Suspect]
     Indication: CONVULSION PROPHYLAXIS
  3. PHENYTOIN [Suspect]
     Indication: CONVULSION
     Dosage: EXTENDED RELEASE
     Dates: start: 20090404, end: 20091005
  4. PHENYTOIN [Suspect]
     Indication: CONVULSION PROPHYLAXIS

REACTIONS (11)
  - Micturition urgency [Unknown]
  - Stevens-Johnson syndrome [Unknown]
  - Pyrexia [Unknown]
  - Fatigue [Unknown]
  - Asthenia [Unknown]
  - Nausea [Unknown]
  - Vomiting [Unknown]
  - Macule [Unknown]
  - Rash [Unknown]
  - Conjunctival disorder [Unknown]
  - Oral disorder [Unknown]
